FAERS Safety Report 5452650-1 (Version None)
Quarter: 2007Q3

REPORT INFORMATION
  Report Type: 
  Country: None (occurrence: None)
  Receive Date: 20070914
  Receipt Date: 20070912
  Transmission Date: 20080115
  Serious: Yes (Hospitalization)
  Sender: FDA-Public Use
  Company Number: FR-BRISTOL-MYERS SQUIBB COMPANY-13906698

PATIENT
  Age: 52 Year
  Sex: Female

DRUGS (4)
  1. REYATAZ [Suspect]
     Indication: HIV INFECTION
     Route: 048
     Dates: start: 20070708, end: 20070823
  2. SULFUR [Concomitant]
     Dates: start: 20070629, end: 20070701
  3. NORVIR [Concomitant]
  4. TRUVADA [Concomitant]

REACTIONS (1)
  - ECZEMA [None]
